FAERS Safety Report 8429004-9 (Version None)
Quarter: 2012Q2

REPORT INFORMATION
  Report Type: 
  Country: None (occurrence: None)
  Receive Date: 20120612
  Receipt Date: 20110718
  Transmission Date: 20120825
  Serious: No
  Sender: FDA-Public Use
  Company Number: US-COVIDIEN/TYCO HEALTHCARE/MALLINCKRODT-T201101439

PATIENT
  Sex: Male

DRUGS (3)
  1. HEPARIN [Concomitant]
     Dosage: UNK
     Dates: start: 20110715, end: 20110715
  2. ULTRA-TECHNEKOW [Concomitant]
     Dosage: UNK
     Dates: start: 20110715, end: 20110715
  3. ULTRATAG [Suspect]
     Dosage: UNK
     Dates: start: 20110715, end: 20110715

REACTIONS (1)
  - DRUG INEFFECTIVE [None]
